FAERS Safety Report 5300849-7 (Version None)
Quarter: 2007Q1

REPORT INFORMATION
  Report Type: 
  Country: None (occurrence: None)
  Receive Date: 20070201
  Receipt Date: 20061202
  Transmission Date: 20070707
  Serious: No
  Sender: FDA-Public Use
  Company Number: 2006PV026184

PATIENT
  Age: 70 Year
  Sex: Female

DRUGS (8)
  1. BYETTA [Suspect]
     Indication: DIABETES MELLITUS NON-INSULIN-DEPENDENT
     Dosage: 5 MCG; BID; SC
     Route: 058
     Dates: start: 20061201
  2. PLENDIL [Concomitant]
  3. NITRO-BID [Concomitant]
  4. ATENOLOL [Concomitant]
  5. PLAVIX [Suspect]
  6. ASPIRIN [Concomitant]
  7. NOVOLOG MIX 70/30 [Concomitant]
  8. ANARYL [Concomitant]

REACTIONS (7)
  - ANXIETY [None]
  - BLOOD GLUCOSE DECREASED [None]
  - BLOOD GLUCOSE FLUCTUATION [None]
  - CHEST PAIN [None]
  - HEART RATE INCREASED [None]
  - HYPERHIDROSIS [None]
  - NAUSEA [None]
